FAERS Safety Report 26134269 (Version 1)
Quarter: 2025Q4

REPORT INFORMATION
  Report Type: Spontaneous
  Country: CN (occurrence: CN)
  Receive Date: 20251209
  Receipt Date: 20251209
  Transmission Date: 20260118
  Serious: Yes (Life-Threatening, Other)
  Sender: SOMERSET THERAPEUTICS, LLC
  Company Number: CN-MIT-25-75-CN-2025-SOM-LIT-00479

PATIENT
  Age: 52 Year
  Sex: Female

DRUGS (5)
  1. PEMETREXED DISODIUM [Suspect]
     Active Substance: PEMETREXED DISODIUM
     Indication: Non-small cell lung cancer
     Dosage: VIA THE OMMAYA RESERVOIR, 30MG ON DAY 1 AND DAY 8, WITH A CYCLE EVERY 3 WEEKS
     Route: 037
     Dates: start: 202302
  2. PEMETREXED DISODIUM [Suspect]
     Active Substance: PEMETREXED DISODIUM
     Dosage: SINGLE CYCLE
     Route: 037
     Dates: start: 20230221
  3. PEMETREXED DISODIUM [Suspect]
     Active Substance: PEMETREXED DISODIUM
     Route: 037
     Dates: start: 202307, end: 20240120
  4. CARBOPLATIN [Suspect]
     Active Substance: CARBOPLATIN
     Indication: Non-small cell lung cancer
     Route: 065
     Dates: start: 20230221
  5. AUMOLERTINIB [Suspect]
     Active Substance: AUMOLERTINIB
     Indication: Non-small cell lung cancer
     Route: 048

REACTIONS (7)
  - Myelosuppression [Recovered/Resolved]
  - Nausea [Recovered/Resolved]
  - Vomiting [Recovered/Resolved]
  - Mouth ulceration [Recovered/Resolved]
  - Decreased appetite [Recovered/Resolved]
  - Aspartate aminotransferase increased [Recovered/Resolved]
  - Alanine aminotransferase increased [Recovered/Resolved]
